FAERS Safety Report 5218175-3 (Version None)
Quarter: 2007Q1

REPORT INFORMATION
  Report Type: 
  Country: None (occurrence: None)
  Receive Date: 20070124
  Receipt Date: 20070118
  Transmission Date: 20070707
  Serious: Yes (Other)
  Sender: FDA-Public Use
  Company Number: US-PFIZER INC-2006122811

PATIENT
  Sex: Female

DRUGS (2)
  1. LIPITOR [Suspect]
     Dates: start: 20040101, end: 20051001
  2. NEXIUM [Concomitant]
     Route: 048

REACTIONS (7)
  - AMNESIA [None]
  - ASTHENIA [None]
  - COGNITIVE DISORDER [None]
  - DEPRESSION [None]
  - DISORIENTATION [None]
  - FATIGUE [None]
  - NEUROPATHY PERIPHERAL [None]
